FAERS Safety Report 6395339-7 (Version None)
Quarter: 2009Q4

REPORT INFORMATION
  Report Type: 
  Country: None (occurrence: None)
  Receive Date: 20091009
  Receipt Date: 20091007
  Transmission Date: 20100525
  Serious: Yes (Hospitalization)
  Sender: FDA-Public Use
  Company Number: B0597011A

PATIENT
  Sex: Female

DRUGS (2)
  1. LANOXIN [Suspect]
     Indication: DRUG USE FOR UNKNOWN INDICATION
     Dates: start: 20080905, end: 20090905
  2. VERAPAMIL [Suspect]
     Indication: DRUG USE FOR UNKNOWN INDICATION
     Dates: start: 20080905, end: 20090905

REACTIONS (4)
  - BRADYCARDIA [None]
  - CHEST PAIN [None]
  - DIZZINESS [None]
  - SWELLING [None]
